FAERS Safety Report 6463605-2 (Version None)
Quarter: 2009Q4

REPORT INFORMATION
  Report Type: 
  Country: None (occurrence: None)
  Receive Date: 20091201
  Receipt Date: 20091123
  Transmission Date: 20100525
  Serious: Yes (Other)
  Sender: FDA-Public Use
  Company Number: FR-ASTRAZENECA-2009SE28405

PATIENT
  Age: 74 Year
  Sex: Female

DRUGS (6)
  1. CRESTOR [Suspect]
     Indication: HYPERCHOLESTEROLAEMIA
     Route: 048
     Dates: start: 20090201, end: 20090813
  2. CRESTOR [Suspect]
     Route: 048
     Dates: start: 20090814
  3. KARDEGIC [Concomitant]
     Route: 048
  4. COVERSYL [Concomitant]
     Route: 048
  5. TANAKAN [Concomitant]
     Route: 048
  6. FLUDEX [Concomitant]
     Route: 048

REACTIONS (1)
  - PORPHYRIA [None]
